FAERS Safety Report 19268203 (Version 1)
Quarter: 2021Q2

REPORT INFORMATION
  Report Type: Spontaneous
  Country: US (occurrence: US)
  Receive Date: 20210518
  Receipt Date: 20210518
  Transmission Date: 20210717
  Serious: No
  Sender: FDA-Public Use
  Company Number: US-APOTEX-2020AP014402

PATIENT
  Age: 86 Year
  Sex: Female

DRUGS (2)
  1. IMIQUIMOD. [Suspect]
     Active Substance: IMIQUIMOD
     Indication: LENTIGO MALIGNA
     Dosage: UNK FIVE TIMES PER WEEK
     Route: 061
  2. IMIQUIMOD. [Suspect]
     Active Substance: IMIQUIMOD
     Dosage: UNK, QD (TOTAL 70 APPLICATIONS OVER 12 WEEKS)
     Route: 061

REACTIONS (5)
  - Pruritus [Recovered/Resolved]
  - Drug effective for unapproved indication [Unknown]
  - Off label use [Unknown]
  - Lip infection [Unknown]
  - Erythema [Recovered/Resolved]
